FAERS Safety Report 5130079-3 (Version None)
Quarter: 2006Q4

REPORT INFORMATION
  Report Type: 
  Country: None (occurrence: None)
  Receive Date: 20061013
  Receipt Date: 20060927
  Transmission Date: 20070319
  Serious: Yes (Hospitalization)
  Sender: FDA-Public Use
  Company Number: FR200608005214

PATIENT
  Age: 82 Year
  Sex: Female
  Weight: 57 kg

DRUGS (7)
  1. FORTEO [Suspect]
     Indication: OSTEOPOROSIS
     Dosage: 20 UG, DAILY (1/D), SUBCUTANEOUS
     Route: 058
     Dates: start: 20051004
  2. FORTEO [Concomitant]
  3. CELECTOL [Concomitant]
  4. IMODIUM [Concomitant]
  5. MOGADON (NITRAZEPAM) [Concomitant]
  6. CODOLIPRANE (CODEINE PHOSPHATE, PARACETAMOL) [Concomitant]
  7. LORAZEPAM [Concomitant]

REACTIONS (7)
  - ANOREXIA [None]
  - DEATH OF SIBLING [None]
  - DEPRESSION [None]
  - DIARRHOEA [None]
  - FATIGUE [None]
  - TREATMENT NONCOMPLIANCE [None]
  - WEIGHT DECREASED [None]
